FAERS Safety Report 23799900 (Version 1)
Quarter: 2024Q2

REPORT INFORMATION
  Report Type: Spontaneous
  Country: GB (occurrence: GB)
  Receive Date: 20240430
  Receipt Date: 20240430
  Transmission Date: 20240716
  Serious: Yes (Life-Threatening, Hospitalization, Other)
  Sender: FDA-Public Use
  Company Number: GB-JNJFOC-20240441861

PATIENT
  Age: 66 Year
  Sex: Female
  Weight: 58 kg

DRUGS (5)
  1. DEXAMETHASONE [Suspect]
     Active Substance: DEXAMETHASONE
     Indication: Plasma cell myeloma
     Dosage: MOST RECENT DOSE PRIOR TO EVENT ON 26-MAR-2024
     Route: 065
     Dates: start: 20240126
  2. VELCADE [Suspect]
     Active Substance: BORTEZOMIB
     Indication: Plasma cell myeloma
     Dosage: MOST RECENT DOSE PRIOR TO EVENT ON 25-MAR-2024
     Route: 065
     Dates: start: 20240126
  3. ACYCLOVIR [Concomitant]
     Active Substance: ACYCLOVIR
     Indication: Prophylaxis
     Dates: start: 20240126
  4. RAMIPRIL [Concomitant]
     Active Substance: RAMIPRIL
     Indication: Essential hypertension
     Dates: start: 20130926
  5. NIFEDIPINE [Concomitant]
     Active Substance: NIFEDIPINE
     Indication: Essential hypertension
     Dates: start: 20130923

REACTIONS (6)
  - Hypothermia [Recovering/Resolving]
  - Swelling face [Unknown]
  - Chest pain [Recovering/Resolving]
  - Oedema peripheral [Unknown]
  - Pain in jaw [Unknown]
  - Sepsis [Unknown]

NARRATIVE: CASE EVENT DATE: 20240301
